FAERS Safety Report 6734884-9 (Version None)
Quarter: 2010Q2

REPORT INFORMATION
  Report Type: 
  Country: None (occurrence: None)
  Receive Date: 20100521
  Receipt Date: 20100512
  Transmission Date: 20101027
  Serious: No
  Sender: FDA-Public Use
  Company Number: US-BIOGENIDEC-2010BI016238

PATIENT
  Age: 45 Year
  Sex: Female

DRUGS (2)
  1. TYSABRI [Suspect]
     Indication: MULTIPLE SCLEROSIS
     Route: 042
     Dates: start: 20070802, end: 20091028
  2. TYSABRI [Suspect]
     Route: 042
     Dates: start: 20100223

REACTIONS (2)
  - NASOPHARYNGITIS [None]
  - SINUSITIS [None]
